FAERS Safety Report 19729321 (Version 1)
Quarter: 2021Q3

REPORT INFORMATION
  Report Type: Report from Study
  Country: None (occurrence: US)
  Receive Date: 20210821
  Receipt Date: 20210821
  Transmission Date: 20211014
  Serious: Yes (Hospitalization, Other)
  Sender: FDA-Public Use
  Company Number: US-ABBVIE-21K-163-4036451-00

PATIENT
  Age: 77 Year
  Sex: Male
  Weight: 119.4 kg

DRUGS (3)
  1. MODERNA COVID?19 VACCINE [Concomitant]
     Active Substance: CX-024414
     Indication: COVID-19 IMMUNISATION
     Route: 030
     Dates: start: 20210203, end: 20210203
  2. HUMIRA [Suspect]
     Active Substance: ADALIMUMAB
     Indication: PSORIASIS
     Route: 058
     Dates: start: 2015
  3. MODERNA COVID?19 VACCINE [Concomitant]
     Active Substance: CX-024414
     Route: 030
     Dates: start: 20210303, end: 20210303

REACTIONS (13)
  - Behcet^s syndrome [Recovered/Resolved]
  - Coronary artery stenosis [Not Recovered/Not Resolved]
  - Oedema [Not Recovered/Not Resolved]
  - Weight decreased [Recovered/Resolved]
  - Skin cancer [Recovered/Resolved]
  - Joint noise [Recovered/Resolved]
  - VIth nerve paralysis [Recovered/Resolved]
  - Diabetes mellitus [Unknown]
  - Dysphagia [Recovered/Resolved]
  - Renal failure [Not Recovered/Not Resolved]
  - Diplopia [Recovered/Resolved]
  - Cardiac disorder [Not Recovered/Not Resolved]
  - Neuropathy peripheral [Unknown]

NARRATIVE: CASE EVENT DATE: 2017
